FAERS Safety Report 6432953-4 (Version None)
Quarter: 2009Q4

REPORT INFORMATION
  Report Type: 
  Country: None (occurrence: None)
  Receive Date: 20091109
  Receipt Date: 20091105
  Transmission Date: 20100525
  Serious: Yes (Death, Life-Threatening)
  Sender: FDA-Public Use
  Company Number: FR-BRISTOL-MYERS SQUIBB COMPANY-14845598

PATIENT
  Age: 70 Year
  Sex: Female

DRUGS (9)
  1. APROVEL TABS 75 MG [Suspect]
     Indication: HYPERTENSION
     Route: 048
  2. GLUCOPHAGE [Suspect]
     Indication: TYPE 1 DIABETES MELLITUS
     Route: 048
  3. PARIET [Suspect]
     Route: 048
  4. FERO-GRAD VITAMINE C [Concomitant]
     Dosage: 1 DF = 500 UNITS NOT SPECIFIED
     Route: 048
  5. DIGITALINE NATIVELLE [Concomitant]
     Route: 048
  6. LEVEMIR [Concomitant]
     Route: 058
  7. APIDRA [Concomitant]
     Route: 058
     Dates: start: 20070101
  8. ALUMINUM HYDROXIDE AND MAGNESIUM TRISILICATE [Concomitant]
     Indication: DIARRHOEA
     Route: 048
  9. DEBRIDAT [Concomitant]
     Indication: GASTROINTESTINAL PAIN
     Route: 048

REACTIONS (1)
  - LACTIC ACIDOSIS [None]
